FAERS Safety Report 11999729 (Version 1)
Quarter: 2016Q1

REPORT INFORMATION
  Report Type: Spontaneous
  Country: US (occurrence: US)
  Receive Date: 20160204
  Receipt Date: 20160204
  Transmission Date: 20160526
  Serious: No
  Sender: FDA-Public Use
  Company Number: PHEH2016US002623

PATIENT
  Age: 30 Year
  Sex: Female

DRUGS (1)
  1. VOTRIENT [Suspect]
     Active Substance: PAZOPANIB HYDROCHLORIDE
     Indication: EWING^S SARCOMA
     Dosage: 800 MG, QD
     Route: 048
     Dates: start: 20150407

REACTIONS (3)
  - Product use issue [Unknown]
  - Myopia [Unknown]
  - Dry eye [Unknown]

NARRATIVE: CASE EVENT DATE: 20160120
